FAERS Safety Report 7105337-3 (Version None)
Quarter: 2010Q4

REPORT INFORMATION
  Report Type: 
  Country: None (occurrence: None)
  Receive Date: 20101108
  Receipt Date: 20100223
  Transmission Date: 20110411
  Serious: Yes (Life-Threatening, Hospitalization, Other)
  Sender: FDA-Public Use
  Company Number: 2010AC000137

PATIENT
  Age: 54 Year
  Sex: Male
  Weight: 91.173 kg

DRUGS (13)
  1. DIGOXIN [Suspect]
     Dosage: PO, 0.250 MG; QD; PO
     Route: 048
     Dates: start: 20070101, end: 20080101
  2. DIGOXIN [Suspect]
     Dosage: PO, 0.250 MG; QD; PO
     Route: 048
     Dates: start: 20050101
  3. DIGOXIN [Suspect]
     Indication: CARDIAC FAILURE CONGESTIVE
     Dosage: 0.125 MG; QD; PO
     Route: 048
     Dates: start: 20060101
  4. ALTACE [Concomitant]
  5. COREG [Concomitant]
  6. ENALAPRIL MALEATE [Concomitant]
  7. LASIX [Concomitant]
  8. ASPIRIN [Concomitant]
  9. POTASSIUM CHLORIDE [Concomitant]
  10. METHADONE HCL [Concomitant]
  11. AMBIEN [Concomitant]
  12. PAXIL [Concomitant]
  13. DOBUTAMINE INFUSIONS [Concomitant]

REACTIONS (24)
  - ARRHYTHMIA [None]
  - CHEST PAIN [None]
  - DILATATION VENTRICULAR [None]
  - DIZZINESS [None]
  - DYSPNOEA [None]
  - DYSPNOEA PAROXYSMAL NOCTURNAL [None]
  - ELECTROCARDIOGRAM T WAVE INVERSION [None]
  - EXERCISE TOLERANCE DECREASED [None]
  - FATIGUE [None]
  - HYPERHIDROSIS [None]
  - LEFT VENTRICULAR DYSFUNCTION [None]
  - MEDICAL DEVICE DISCOMFORT [None]
  - MITRAL VALVE INCOMPETENCE [None]
  - MULTIPLE INJURIES [None]
  - PARTNER STRESS [None]
  - RIGHT ATRIAL DILATATION [None]
  - SINUS BRADYCARDIA [None]
  - SUPRAVENTRICULAR EXTRASYSTOLES [None]
  - TREATMENT NONCOMPLIANCE [None]
  - TRICUSPID VALVE INCOMPETENCE [None]
  - VENTRICULAR EXTRASYSTOLES [None]
  - VENTRICULAR HYPOKINESIA [None]
  - VENTRICULAR TACHYCARDIA [None]
  - WEIGHT INCREASED [None]
